FAERS Safety Report 4639654-3 (Version None)
Quarter: 2005Q2

REPORT INFORMATION
  Report Type: 
  Country: None (occurrence: None)
  Receive Date: 20050328
  Receipt Date: 20041217
  Transmission Date: 20051028
  Serious: No
  Sender: FDA-Public Use
  Company Number: USA041286533

PATIENT
  Age: 7 Year
  Sex: Male
  Weight: 20 kg

DRUGS (3)
  1. STRATTERA [Suspect]
     Indication: ATTENTION DEFICIT/HYPERACTIVITY DISORDER
  2. ADDERALL 20 [Concomitant]
  3. MULTI-VITAMIN [Concomitant]

REACTIONS (5)
  - DYSPNOEA [None]
  - INFLUENZA LIKE ILLNESS [None]
  - RESPIRATORY TRACT INFECTION [None]
  - RHINORRHOEA [None]
  - TIC [None]
